FAERS Safety Report 6085740-3 (Version None)
Quarter: 2009Q1

REPORT INFORMATION
  Report Type: 
  Country: None (occurrence: None)
  Receive Date: 20090220
  Receipt Date: 20090217
  Transmission Date: 20090719
  Serious: Yes (Hospitalization)
  Sender: FDA-Public Use
  Company Number: PHBS2006JP15981

PATIENT
  Age: 56 Year
  Sex: Male

DRUGS (6)
  1. NEORAL [Suspect]
     Indication: PUSTULAR PSORIASIS
     Dosage: 350 MG/DAY
     Route: 048
     Dates: start: 20001110, end: 20030307
  2. SANDIMMUNE [Suspect]
     Indication: PUSTULAR PSORIASIS
     Dosage: 400 MG/DAY
     Route: 048
     Dates: start: 19920701, end: 19970128
  3. SANDIMMUNE [Suspect]
     Dosage: 250 MG/DAY
     Route: 048
     Dates: start: 19970215, end: 20001109
  4. METHOTREXATE [Suspect]
     Indication: PUSTULAR PSORIASIS
     Dosage: 7.5 MG/DAY
     Route: 048
     Dates: start: 19970425, end: 20050603
  5. TIGASON [Suspect]
     Indication: PUSTULAR PSORIASIS
     Dosage: 20 MG/DAY
     Route: 048
     Dates: start: 20021128, end: 20050603
  6. NSAID'S [Concomitant]

REACTIONS (11)
  - BLOOD CREATININE INCREASED [None]
  - BLOOD URINE PRESENT [None]
  - DERMATITIS EXFOLIATIVE [None]
  - GLOMERULONEPHRITIS [None]
  - HAEMODIALYSIS [None]
  - PROTEINURIA [None]
  - PYREXIA [None]
  - RASH PUSTULAR [None]
  - RENAL ATROPHY [None]
  - RENAL IMPAIRMENT [None]
  - RENAL TUBULAR DISORDER [None]
